FAERS Safety Report 4362501-4 (Version None)
Quarter: 2004Q2

REPORT INFORMATION
  Report Type: 
  Country: None (occurrence: None)
  Receive Date: 20040521
  Receipt Date: 20040430
  Transmission Date: 20050107
  Serious: Yes (Other)
  Sender: FDA-Public Use
  Company Number: PHEH2004US04799

PATIENT
  Age: 61 Year
  Sex: Female
  Weight: 88 kg

DRUGS (3)
  1. ZELNORM [Suspect]
     Indication: CONSTIPATION
     Dosage: 6 MG, BID
     Route: 048
     Dates: start: 20040310, end: 20040429
  2. PRILOSEC [Concomitant]
  3. PREMARIN                                /NEZ/ [Concomitant]

REACTIONS (9)
  - AGGRESSION [None]
  - ANAL DISCOMFORT [None]
  - CHANGE OF BOWEL HABIT [None]
  - DIARRHOEA [None]
  - DIZZINESS [None]
  - FREQUENT BOWEL MOVEMENTS [None]
  - INSOMNIA [None]
  - NIGHTMARE [None]
  - SUICIDAL IDEATION [None]
